FAERS Safety Report 12615338 (Version 1)
Quarter: 2016Q3

REPORT INFORMATION
  Report Type: Spontaneous
  Country: US (occurrence: US)
  Receive Date: 20160802
  Receipt Date: 20160802
  Transmission Date: 20161109
  Serious: No
  Sender: FDA-Public Use
  Company Number: US-TARO-2016TAR00533

PATIENT
  Age: 45 Month
  Sex: Female
  Weight: 13.61 kg

DRUGS (5)
  1. FLUOCINONIDE CREAM USP 0.05% [Suspect]
     Active Substance: FLUOCINONIDE
     Indication: RASH
     Dosage: 1 DOSAGE UNITS, ONCE
     Route: 061
     Dates: start: 20160603, end: 20160603
  2. FLUOCINONIDE CREAM USP 0.05% [Suspect]
     Active Substance: FLUOCINONIDE
     Dosage: 3 DOSAGE UNITS, ONCE
     Route: 061
     Dates: start: 20160603, end: 20160603
  3. SINUPRET [Concomitant]
     Active Substance: HERBALS
     Dosage: 3.5 ML, 3X/DAY
  4. SODIUM CHLORIDE NASAL RINSE [Concomitant]
     Dosage: UNK, 3X/DAY
     Route: 045
  5. LIVOSTIN [Concomitant]
     Active Substance: LEVOCABASTINE HYDROCHLORIDE
     Dosage: 2 DOSAGE UNITS, 2X/DAY
     Route: 045

REACTIONS (3)
  - Rash [Recovering/Resolving]
  - Application site pain [Recovered/Resolved]
  - Drug ineffective [Not Recovered/Not Resolved]

NARRATIVE: CASE EVENT DATE: 20160603
